FAERS Safety Report 21042656 (Version 1)
Quarter: 2022Q3

REPORT INFORMATION
  Report Type: Spontaneous
  Country: US (occurrence: None)
  Receive Date: 20220703
  Receipt Date: 20220703
  Transmission Date: 20221027
  Serious: Yes (Other)
  Sender: FDA-Public Use
  Company Number: None

PATIENT
  Age: 44 Year
  Sex: Female
  Weight: 58.5 kg

DRUGS (6)
  1. PAXLOVID [Suspect]
     Active Substance: NIRMATRELVIR\RITONAVIR
     Indication: COVID-19
     Dosage: FREQUENCY : TWICE A DAY;?
     Route: 048
     Dates: start: 20220702, end: 20220703
  2. VITAMINS [Concomitant]
     Active Substance: VITAMINS
     Dates: start: 20220629
  3. VITAMIN D [Concomitant]
     Active Substance: VITAMIN D NOS
     Dates: start: 20170629
  4. VITAMIN C [Concomitant]
     Active Substance: ASCORBIC ACID
     Dates: start: 20220629
  5. HERBALS\TURMERIC [Concomitant]
     Active Substance: HERBALS\TURMERIC
     Dates: start: 20220619
  6. TYLENOL [Concomitant]
     Active Substance: ACETAMINOPHEN
     Dates: start: 20220629, end: 20220702

REACTIONS (4)
  - Dysgeusia [None]
  - Heart rate increased [None]
  - Eye discharge [None]
  - Ocular hyperaemia [None]

NARRATIVE: CASE EVENT DATE: 20220702
